FAERS Safety Report 5526667-2 (Version None)
Quarter: 2007Q4

REPORT INFORMATION
  Report Type: 
  Country: None (occurrence: None)
  Receive Date: 20071127
  Receipt Date: 20071114
  Transmission Date: 20080405
  Serious: Yes (Life-Threatening, Hospitalization)
  Sender: FDA-Public Use
  Company Number: GB-AMGEN-UK252638

PATIENT
  Sex: Female

DRUGS (2)
  1. PANITUMUMAB [Suspect]
     Indication: COLORECTAL CANCER
     Route: 042
     Dates: start: 20071017
  2. IRINOTECAN HCL [Suspect]
     Route: 042
     Dates: start: 20071017

REACTIONS (1)
  - PNEUMONIA [None]
